FAERS Safety Report 21875751 (Version 2)
Quarter: 2023Q1

REPORT INFORMATION
  Report Type: Spontaneous
  Country: LB (occurrence: LB)
  Receive Date: 20230118
  Receipt Date: 20230206
  Transmission Date: 20230418
  Serious: Yes (Death)
  Sender: FDA-Public Use
  Company Number: LB-NOVOPROD-1011349

PATIENT
  Sex: Male

DRUGS (1)
  1. NOVOSEVEN [Suspect]
     Active Substance: COAGULATION FACTOR VIIA RECOMBINANT HUMAN
     Indication: Post procedural haemorrhage
     Dosage: 20 MG

REACTIONS (4)
  - Post procedural haemorrhage [Fatal]
  - Condition aggravated [Fatal]
  - Therapeutic product ineffective [Fatal]
  - Off label use [Unknown]
